FAERS Safety Report 8287485-8 (Version None)
Quarter: 2012Q2

REPORT INFORMATION
  Report Type: 
  Country: None (occurrence: None)
  Receive Date: 20120416
  Receipt Date: 20120412
  Transmission Date: 20120825
  Serious: Yes (Hospitalization, Other)
  Sender: FDA-Public Use
  Company Number: US-TEVA-326341USA

PATIENT
  Sex: Male
  Weight: 79.24 kg

DRUGS (3)
  1. TREANDA [Suspect]
     Indication: B-CELL LYMPHOMA
     Route: 042
     Dates: start: 20111215
  2. PREDNISONE TAB [Suspect]
     Indication: B-CELL LYMPHOMA
     Route: 048
  3. OBINUTUZUMAB [Suspect]
     Route: 042
     Dates: start: 20111215

REACTIONS (5)
  - HEPATOTOXICITY [None]
  - HYPOTENSION [None]
  - TACHYCARDIA [None]
  - ALANINE AMINOTRANSFERASE INCREASED [None]
  - SEPSIS [None]
